FAERS Safety Report 16134486 (Version 1)
Quarter: 2019Q1

REPORT INFORMATION
  Report Type: Spontaneous
  Country: CN (occurrence: CN)
  Receive Date: 20190329
  Receipt Date: 20190329
  Transmission Date: 20190418
  Serious: Yes (Other)
  Sender: FDA-Public Use
  Company Number: CN-PFIZER INC-2019128840

PATIENT
  Age: 61 Year
  Sex: Female
  Weight: 75 kg

DRUGS (4)
  1. XI KE LAO [Suspect]
     Active Substance: CEFACLOR
     Indication: PHARYNGITIS
     Dosage: 0.25 G, 3X/DAY
     Route: 048
     Dates: start: 20190114, end: 20190114
  2. LOQUAT [Concomitant]
     Indication: COUGH
     Dosage: 15 ML, 3X/DAY
     Route: 048
     Dates: start: 20190114, end: 20190114
  3. NORVASC [Suspect]
     Active Substance: AMLODIPINE BESYLATE
     Indication: HYPERTENSION
     Dosage: 5 MG, 1X/DAY
     Route: 048
     Dates: start: 20190114, end: 20190114
  4. QING RE LING [Concomitant]
     Indication: PHARYNGITIS
     Dosage: 10 G, 3X/DAY
     Route: 048
     Dates: start: 20190114, end: 20190114

REACTIONS (6)
  - Hypoaesthesia [Recovered/Resolved]
  - Pruritus [Recovered/Resolved]
  - Abdominal pain [Recovered/Resolved]
  - Flushing [Recovered/Resolved]
  - Oedema [Recovered/Resolved]
  - Dysarthria [Recovered/Resolved]

NARRATIVE: CASE EVENT DATE: 20190114
